FAERS Safety Report 26142366 (Version 1)
Quarter: 2025Q4

REPORT INFORMATION
  Report Type: Spontaneous
  Country: CN (occurrence: CN)
  Receive Date: 20251210
  Receipt Date: 20251210
  Transmission Date: 20260117
  Serious: Yes (Hospitalization)
  Sender: BEIGENE
  Company Number: CN-BEONEMEDICINES-BGN-2025-021814

PATIENT
  Age: 68 Year
  Sex: Female
  Weight: 40 kg

DRUGS (16)
  1. TISLELIZUMAB [Suspect]
     Active Substance: TISLELIZUMAB
     Indication: Ureteric cancer
     Dosage: UNK UNK, Q3WK
  2. TISLELIZUMAB [Suspect]
     Active Substance: TISLELIZUMAB
     Dosage: UNK UNK, Q3WK
  3. TISLELIZUMAB [Suspect]
     Active Substance: TISLELIZUMAB
     Dosage: UNK UNK, Q3WK
     Route: 041
  4. TISLELIZUMAB [Suspect]
     Active Substance: TISLELIZUMAB
     Dosage: UNK UNK, Q3WK
     Route: 041
  5. TISLELIZUMAB [Suspect]
     Active Substance: TISLELIZUMAB
     Dosage: 200 MILLIGRAM, Q3WK
     Dates: start: 20251121
  6. TISLELIZUMAB [Suspect]
     Active Substance: TISLELIZUMAB
     Dosage: 200 MILLIGRAM, Q3WK
     Dates: start: 20251121
  7. TISLELIZUMAB [Suspect]
     Active Substance: TISLELIZUMAB
     Dosage: 200 MILLIGRAM, Q3WK
     Route: 041
     Dates: start: 20251121
  8. TISLELIZUMAB [Suspect]
     Active Substance: TISLELIZUMAB
     Dosage: 200 MILLIGRAM, Q3WK
     Route: 041
     Dates: start: 20251121
  9. GEMCITABINE HYDROCHLORIDE [Suspect]
     Active Substance: GEMCITABINE HYDROCHLORIDE
     Indication: Ureteric cancer
     Dosage: UNK UNK, Q3WK
  10. GEMCITABINE HYDROCHLORIDE [Suspect]
     Active Substance: GEMCITABINE HYDROCHLORIDE
     Dosage: UNK UNK, Q3WK
     Route: 041
  11. GEMCITABINE HYDROCHLORIDE [Suspect]
     Active Substance: GEMCITABINE HYDROCHLORIDE
     Dosage: 1000 MILLIGRAM/SQ. METER (0.98 GRAM), D1/D8, Q3WK
     Dates: start: 20251121
  12. GEMCITABINE HYDROCHLORIDE [Suspect]
     Active Substance: GEMCITABINE HYDROCHLORIDE
     Dosage: 1000 MILLIGRAM/SQ. METER (0.98 GRAM), D1/D8, Q3WK
     Route: 041
     Dates: start: 20251121
  13. CISPLATIN [Suspect]
     Active Substance: CISPLATIN
     Indication: Ureteric cancer
     Dosage: UNK UNK, Q3WK
  14. CISPLATIN [Suspect]
     Active Substance: CISPLATIN
     Dosage: UNK UNK, Q3WK
     Route: 041
  15. CISPLATIN [Suspect]
     Active Substance: CISPLATIN
     Dosage: 70 MILLIGRAM/SQ. METER (50 MILLIGRAM) D1
     Dates: start: 20251121
  16. CISPLATIN [Suspect]
     Active Substance: CISPLATIN
     Dosage: 70 MILLIGRAM/SQ. METER (50 MILLIGRAM) D1
     Route: 041
     Dates: start: 20251121

REACTIONS (1)
  - Myelosuppression [Recovering/Resolving]

NARRATIVE: CASE EVENT DATE: 20251126
